FAERS Safety Report 5152223-4 (Version None)
Quarter: 2006Q4

REPORT INFORMATION
  Report Type: 
  Country: None (occurrence: None)
  Receive Date: 20061116
  Receipt Date: 20050114
  Transmission Date: 20070319
  Serious: Yes (Other)
  Sender: FDA-Public Use
  Company Number: PHEH2005US00956

PATIENT
  Age: 73 Year
  Sex: Female

DRUGS (3)
  1. ZOMETA [Suspect]
     Indication: BREAST CANCER METASTATIC
     Dosage: 4 MG, UNK
     Dates: start: 20030314, end: 20041111
  2. ZOMETA [Suspect]
     Dates: start: 20050301, end: 20050901
  3. RADIATION THERAPY [Concomitant]
     Dosage: 3400 CGY
     Dates: start: 20030319, end: 20030410

REACTIONS (5)
  - BONE DISORDER [None]
  - FATIGUE [None]
  - MALAISE [None]
  - OSTEONECROSIS [None]
  - PAIN IN JAW [None]
